FAERS Safety Report 6996414-6 (Version None)
Quarter: 2010Q3

REPORT INFORMATION
  Report Type: 
  Country: None (occurrence: None)
  Receive Date: 20100918
  Receipt Date: 20090317
  Transmission Date: 20110219
  Serious: No
  Sender: FDA-Public Use
  Company Number: US-WYE-H08634109

PATIENT
  Sex: Female

DRUGS (4)
  1. EFFEXOR XR [Suspect]
     Indication: DEPRESSION
     Dosage: ^3-- 75 MG TABLETS DAILY^
     Route: 048
     Dates: start: 20030101
  2. LIPITOR [Concomitant]
     Indication: HYPERCHOLESTEROLAEMIA
     Dosage: UNSPECIFIED DOSE, DAILY
  3. ZOLPIDEM [Concomitant]
     Dosage: UNSPECIFIED DOSE, NIGHTLY AT BEDTIME
  4. METOPROLOL [Concomitant]
     Indication: HYPERTENSION
     Dosage: UNSPECIFIED DOSE, DAILY

REACTIONS (2)
  - ASTHENIA [None]
  - MEDICATION RESIDUE [None]
